FAERS Safety Report 16675016 (Version 5)
Quarter: 2019Q4

REPORT INFORMATION
  Report Type: Spontaneous
  Country: US (occurrence: US)
  Receive Date: 20190806
  Receipt Date: 20191029
  Transmission Date: 20200122
  Serious: Yes (Hospitalization, Other)
  Sender: FDA-Public Use
  Company Number: US-SA-2019SA208713

PATIENT
  Age: 73 Year
  Sex: Female

DRUGS (6)
  1. PLAQUENIL [Concomitant]
     Active Substance: HYDROXYCHLOROQUINE SULFATE
     Indication: RHEUMATOID ARTHRITIS
  2. DUPIXENT [Suspect]
     Active Substance: DUPILUMAB
     Indication: DERMATITIS ATOPIC
     Dosage: 300 MG, QOW
     Route: 058
     Dates: start: 20190717, end: 201909
  3. GANCICLOVIR. [Concomitant]
     Active Substance: GANCICLOVIR
  4. DUPIXENT [Suspect]
     Active Substance: DUPILUMAB
     Dosage: UNK
     Dates: start: 201908
  5. ZOSYN [Concomitant]
     Active Substance: PIPERACILLIN SODIUM\TAZOBACTAM SODIUM
     Route: 042
  6. DOXYCYCLINE. [Concomitant]
     Active Substance: DOXYCYCLINE

REACTIONS (10)
  - Eosinophilic pneumonia [Recovering/Resolving]
  - Pulmonary mass [Recovering/Resolving]
  - Blood immunoglobulin E increased [Unknown]
  - Lung infiltration [Recovering/Resolving]
  - Therapeutic response decreased [Unknown]
  - Acute respiratory distress syndrome [Unknown]
  - Eosinophil count increased [Unknown]
  - Lymphadenopathy mediastinal [Recovering/Resolving]
  - Leukocytosis [Unknown]
  - Pruritus [Unknown]

NARRATIVE: CASE EVENT DATE: 201909
